FAERS Safety Report 8494807-1 (Version None)
Quarter: 2012Q3

REPORT INFORMATION
  Report Type: 
  Country: None (occurrence: None)
  Receive Date: 20120709
  Receipt Date: 20120703
  Transmission Date: 20120928
  Serious: Yes (Hospitalization)
  Sender: FDA-Public Use
  Company Number: US-BAYER-201029199NA

PATIENT
  Age: 19 Year
  Sex: Female
  Weight: 45 kg

DRUGS (10)
  1. YASMIN [Suspect]
     Indication: ACNE
  2. DROSPIRENONE AND ETHINYL ESTRADIOL [Suspect]
     Indication: ORAL CONTRACEPTION
  3. PROVIGIL [Concomitant]
     Dosage: 300 MG (DAILY DOSE), ,
  4. ACETAMINOPHEN [Concomitant]
     Indication: MUSCULOSKELETAL PAIN
  5. ACETAMINOPHEN [Concomitant]
  6. VICODIN [Concomitant]
  7. DROSPIRENONE AND ETHINYL ESTRADIOL [Suspect]
     Indication: ACNE
     Route: 048
     Dates: start: 20080701, end: 20080804
  8. TRAMADOL HCL [Concomitant]
     Indication: PAIN
  9. ALBUTEROL [Concomitant]
  10. YASMIN [Suspect]
     Indication: CONTRACEPTION
     Dosage: UNK UNK, UNK
     Route: 048
     Dates: start: 20061201, end: 20080715

REACTIONS (13)
  - PULMONARY EMBOLISM [None]
  - CHILLS [None]
  - MUSCULOSKELETAL PAIN [None]
  - OEDEMA PERIPHERAL [None]
  - PYREXIA [None]
  - JOINT SWELLING [None]
  - NAUSEA [None]
  - HYPOAESTHESIA [None]
  - DEEP VEIN THROMBOSIS [None]
  - PULMONARY INFARCTION [None]
  - ERYTHEMA [None]
  - CELLULITIS [None]
  - AXILLARY PAIN [None]
